FAERS Safety Report 4965281-4 (Version None)
Quarter: 2006Q2

REPORT INFORMATION
  Report Type: 
  Country: None (occurrence: None)
  Receive Date: 20060406
  Receipt Date: 20040213
  Transmission Date: 20061013
  Serious: Yes (Hospitalization)
  Sender: FDA-Public Use
  Company Number: AU-MERCK-0402AUS00165

PATIENT
  Age: 73 Year
  Sex: Female

DRUGS (8)
  1. ZOCOR [Suspect]
     Route: 048
     Dates: end: 20031009
  2. VERAPAMIL [Suspect]
     Route: 048
  3. DIGOXIN [Suspect]
     Route: 065
  4. ERYTHROMYCIN [Suspect]
     Route: 048
  5. RABEPRAZOLE SODIUM [Concomitant]
     Route: 065
  6. ISOSORBIDE MONONITRATE [Concomitant]
     Route: 065
  7. PREDNISONE [Concomitant]
     Route: 065
  8. CLAVULANATE POTASSIUM AND AMOXICILLIN [Concomitant]
     Route: 065

REACTIONS (4)
  - BLOOD CREATINE PHOSPHOKINASE INCREASED [None]
  - DRUG INTERACTION [None]
  - RHABDOMYOLYSIS [None]
  - TROPONIN INCREASED [None]
